FAERS Safety Report 6769524-6 (Version None)
Quarter: 2010Q2

REPORT INFORMATION
  Report Type: 
  Country: None (occurrence: None)
  Receive Date: 20100615
  Receipt Date: 20100604
  Transmission Date: 20101027
  Serious: Yes (Death, Hospitalization, Other)
  Sender: FDA-Public Use
  Company Number: IN-BAXTER-2010BH013302

PATIENT
  Age: 70 Year
  Sex: Male

DRUGS (2)
  1. DIANEAL [Suspect]
     Indication: PERITONEAL DIALYSIS
     Route: 033
     Dates: start: 20100501, end: 20100601
  2. DIANEAL [Suspect]
     Route: 033
     Dates: start: 20100501, end: 20100601

REACTIONS (3)
  - PERITONEAL DIALYSIS COMPLICATION [None]
  - PERITONITIS [None]
  - PNEUMONIA [None]
